FAERS Safety Report 12554545 (Version 3)
Quarter: 2016Q4

REPORT INFORMATION
  Report Type: Spontaneous
  Country: JP (occurrence: JP)
  Receive Date: 20160713
  Receipt Date: 20161127
  Transmission Date: 20170207
  Serious: No
  Sender: FDA-Public Use
  Company Number: PHJP2016JP019324

PATIENT
  Age: 22 Year
  Sex: Female

DRUGS (2)
  1. ALPHA-METHYLDOPA [Suspect]
     Active Substance: METHYLDOPA
     Indication: RENAL HYPERTENSION
     Dosage: UNK
     Route: 065
  2. HYDRALAZINE [Suspect]
     Active Substance: HYDRALAZINE HYDROCHLORIDE
     Indication: BLOOD PRESSURE INCREASED
     Dosage: UNK
     Route: 048

REACTIONS (1)
  - Maternal exposure during pregnancy [Unknown]
